FAERS Safety Report 25824951 (Version 3)
Quarter: 2025Q4

REPORT INFORMATION
  Report Type: Spontaneous
  Country: US (occurrence: US)
  Receive Date: 20250919
  Receipt Date: 20251214
  Transmission Date: 20260117
  Serious: No
  Sender: PFIZER
  Company Number: US-PFIZER INC-202500176840

PATIENT
  Age: 80 Year
  Sex: Female

DRUGS (3)
  1. LEVOXYL [Suspect]
     Active Substance: LEVOTHYROXINE SODIUM
     Indication: Hypothyroidism
     Dosage: ONE TABLET A DAY, BUT ON MONDAY AND FRIDAY TAKES TWO TABLETS A DAY, DAILY
     Route: 048
  2. LEVOXYL [Suspect]
     Active Substance: LEVOTHYROXINE SODIUM
     Dosage: ONE TABLET A DAY, BUT ON MONDAY AND FRIDAY TAKES TWO TABLETS A DAY, DAILY
     Route: 048
  3. LEVOXYL [Suspect]
     Active Substance: LEVOTHYROXINE SODIUM
     Dosage: 50 UG
     Route: 048

REACTIONS (5)
  - Weight increased [Unknown]
  - Somnolence [Unknown]
  - Fatigue [Recovered/Resolved]
  - Recalled product administered [Unknown]
  - Lethargy [Unknown]

NARRATIVE: CASE EVENT DATE: 20250801
